FAERS Safety Report 7824022-3 (Version None)
Quarter: 2011Q4

REPORT INFORMATION
  Report Type: 
  Country: None (occurrence: None)
  Receive Date: 20111014
  Receipt Date: 20111014
  Transmission Date: 20120403
  Serious: Yes (Other)
  Sender: FDA-Public Use
  Company Number: AUR-APL-2011-05387

PATIENT
  Age: 59 Year
  Sex: Female

DRUGS (4)
  1. TOPIRAMATE [Suspect]
     Indication: STATUS EPILEPTICUS
     Dosage: 200 MG (100 MG, 2 IN 1 D), UNKNOWN
     Dates: start: 20100616
  2. LEVETIRACETAM [Concomitant]
  3. PHENYTOIN [Concomitant]
  4. METFORMIN HCL [Concomitant]

REACTIONS (2)
  - GLYCOSYLATED HAEMOGLOBIN DECREASED [None]
  - WEIGHT DECREASED [None]
